FAERS Safety Report 25884470 (Version 1)
Quarter: 2025Q4

REPORT INFORMATION
  Report Type: Spontaneous
  Country: CN (occurrence: CN)
  Receive Date: 20251006
  Receipt Date: 20251006
  Transmission Date: 20260117
  Serious: Yes (Hospitalization)
  Sender: Kenvue
  Company Number: CN-KENVUE-20250916961

PATIENT

DRUGS (10)
  1. MOTRIN INFANTS [Suspect]
     Active Substance: IBUPROFEN
     Indication: Hyperpyrexia
     Dosage: 1.875 MILLILITER, (EVERY 4-6 HOURS) FOUR TIME A DAY
     Route: 048
     Dates: start: 20250915
  2. IBUPROFEN [Suspect]
     Active Substance: IBUPROFEN
     Indication: Hyperpyrexia
     Dosage: 4 MILLILITER, FOUR TIME A DAY
     Route: 048
     Dates: start: 20250913, end: 20250914
  3. ANDROGRAPHOLIDE [Suspect]
     Active Substance: ANDROGRAPHOLIDE
     Indication: Detoxification
     Dosage: 100 MILLIGRAM, ONCE A DAY
     Route: 041
     Dates: start: 20250914
  4. ANDROGRAPHOLIDE [Suspect]
     Active Substance: ANDROGRAPHOLIDE
     Indication: Anti-infective therapy
  5. CEFOTAXIME SODIUM [Suspect]
     Active Substance: CEFOTAXIME SODIUM
     Indication: Bacterial infection
     Dosage: 0.5 GRAM, THRICE A DAY (50 MG/KG Q8H)
     Route: 041
     Dates: start: 20250914
  6. VITAMIN C [Suspect]
     Active Substance: ASCORBIC ACID
     Indication: Nutritional supplementation
     Dosage: 0.25 GRAM, ONCE A DAY
     Route: 041
     Dates: start: 20250914
  7. VITAMIN C [Suspect]
     Active Substance: ASCORBIC ACID
     Indication: Antioxidant therapy
  8. SODIUM CHLORIDE [Suspect]
     Active Substance: SODIUM CHLORIDE
     Indication: Vehicle solution use
     Dosage: 50 MILLILITER, THRICE A DAY
     Route: 041
     Dates: start: 20250914
  9. DEXTROSE [Suspect]
     Active Substance: DEXTROSE MONOHYDRATE
     Indication: Vehicle solution use
     Dosage: 100 MILLILITER, ONCE A DAY
     Route: 041
     Dates: start: 20250913
  10. DEXTROSE [Suspect]
     Active Substance: DEXTROSE MONOHYDRATE
     Dosage: 100 MILLILITER, ONCE A DAY
     Route: 041
     Dates: start: 20250914

REACTIONS (2)
  - Off label use [Unknown]
  - Hepatic function abnormal [Recovering/Resolving]

NARRATIVE: CASE EVENT DATE: 20250915
